FAERS Safety Report 10690196 (Version 1)
Quarter: 2015Q1

REPORT INFORMATION
  Report Type: Spontaneous
  Country: US (occurrence: None)
  Receive Date: 20150102
  Receipt Date: 20150102
  Transmission Date: 20150720
  Serious: No
  Sender: FDA-Public Use
  Company Number: None

PATIENT
  Age: 39 Year
  Sex: Female
  Weight: 50.8 kg

DRUGS (1)
  1. VITAMINS [Suspect]
     Active Substance: VITAMINS
     Indication: VITAMIN SUPPLEMENTATION
     Dosage: TAKEN BY MOUTH
     Route: 048
     Dates: start: 20141227, end: 20141230

REACTIONS (3)
  - Dizziness [None]
  - Bone pain [None]
  - Headache [None]

NARRATIVE: CASE EVENT DATE: 20141229
